FAERS Safety Report 6078188-9 (Version None)
Quarter: 2009Q1

REPORT INFORMATION
  Report Type: 
  Country: None (occurrence: None)
  Receive Date: 20090213
  Receipt Date: 20090211
  Transmission Date: 20090719
  Serious: Yes (Death)
  Sender: FDA-Public Use
  Company Number: PHHY2009CA04672

PATIENT
  Sex: Female

DRUGS (5)
  1. ACLASTA [Suspect]
     Indication: OSTEOPOROSIS
     Dosage: ONCE A YEAR
     Route: 042
     Dates: start: 20080618
  2. CELEBREX [Concomitant]
     Dosage: 200 MG
  3. RHOVANE [Concomitant]
     Dosage: 7.5 MG; 1/2 TAB HS
  4. ELTROXIN [Concomitant]
  5. PANTOPRAZOLE SODIUM [Concomitant]

REACTIONS (1)
  - CARDIAC FAILURE CONGESTIVE [None]
